FAERS Safety Report 13019899 (Version 1)
Quarter: 2016Q4

REPORT INFORMATION
  Report Type: Spontaneous
  Country: US (occurrence: US)
  Receive Date: 20161212
  Receipt Date: 20161212
  Transmission Date: 20170207
  Serious: No
  Sender: FDA-Public Use
  Company Number: US-ROCHE-1830430

PATIENT
  Sex: Female

DRUGS (2)
  1. ACTEMRA [Suspect]
     Active Substance: TOCILIZUMAB
     Indication: RHEUMATOID ARTHRITIS
     Route: 042
     Dates: start: 20150901, end: 20160530
  2. PREDNISONE. [Concomitant]
     Active Substance: PREDNISONE
     Dosage: IN THE MORNING
     Route: 048
     Dates: start: 20160510

REACTIONS (2)
  - Joint crepitation [Recovered/Resolved]
  - Arthralgia [Recovered/Resolved]
